FAERS Safety Report 22271598 (Version 2)
Quarter: 2023Q2

REPORT INFORMATION
  Report Type: Spontaneous
  Country: US (occurrence: US)
  Receive Date: 20230502
  Receipt Date: 20230503
  Transmission Date: 20230721
  Serious: No
  Sender: FDA-Public Use
  Company Number: US-002147023-NVSC2023US099644

PATIENT
  Sex: Female

DRUGS (2)
  1. DIFLUPREDNATE [Suspect]
     Active Substance: DIFLUPREDNATE
     Indication: Eye inflammation
     Dosage: UNK (OPHTHALMIC EMULSION)
     Route: 065
     Dates: start: 202212, end: 202302
  2. DUREZOL [Suspect]
     Active Substance: DIFLUPREDNATE
     Indication: Eye inflammation
     Dosage: UNK
     Route: 065

REACTIONS (2)
  - Product availability issue [Unknown]
  - Drug ineffective [Unknown]
